FAERS Safety Report 6556551-7 (Version None)
Quarter: 2010Q1

REPORT INFORMATION
  Report Type: 
  Country: None (occurrence: None)
  Receive Date: 20100128
  Receipt Date: 20100120
  Transmission Date: 20100710
  Serious: Yes (Hospitalization, Other)
  Sender: FDA-Public Use
  Company Number: US-AMGEN-QUU387105

PATIENT
  Sex: Female

DRUGS (1)
  1. ENBREL [Suspect]
     Indication: DRUG USE FOR UNKNOWN INDICATION
     Route: 058
     Dates: start: 20030201

REACTIONS (6)
  - ARTHRITIS [None]
  - CYSTITIS [None]
  - INFLUENZA [None]
  - NEUTROPHIL COUNT DECREASED [None]
  - OESOPHAGEAL RUPTURE [None]
  - SEPSIS [None]
